FAERS Safety Report 4485739-4 (Version None)
Quarter: 2004Q4

REPORT INFORMATION
  Report Type: 
  Country: None (occurrence: None)
  Receive Date: 20041026
  Receipt Date: 20041014
  Transmission Date: 20050328
  Serious: Yes (Death)
  Sender: FDA-Public Use
  Company Number: US-JNJFOC-20041004704

PATIENT
  Sex: Female
  Weight: 62 kg

DRUGS (21)
  1. NATRECOR [Suspect]
     Dosage: BOLUS 1.462 UG FOLLOWED BY 37.4 UG/HOUR, NO TOTAL DOSE PROVIDED.
     Route: 042
  2. HEPARIN [Concomitant]
     Route: 042
  3. LOVENOX [Concomitant]
  4. INSULIN DRIP [Concomitant]
  5. PROPAFOL [Concomitant]
  6. MAGNESIUM OXIDE [Concomitant]
     Route: 040
  7. FUROSEMIDE [Concomitant]
  8. HUMULIN N [Concomitant]
  9. XOPENEX [Concomitant]
  10. DOPAMINE HCL [Concomitant]
  11. PROTONIX [Concomitant]
  12. ROCEPHIN [Concomitant]
  13. ASPIRIN [Concomitant]
  14. LOPRESSOR [Concomitant]
  15. METOCLOPRAMIDE [Concomitant]
  16. ACTIVASE [Concomitant]
  17. NITROGLYCERIN [Concomitant]
  18. CLINIMIX [Concomitant]
  19. VERAPAMIL [Concomitant]
  20. ENALAPRIL MALEATE [Concomitant]
  21. AMITRIPTYLINE HCL [Concomitant]

REACTIONS (6)
  - BLOOD GLUCOSE INCREASED [None]
  - CONDITION AGGRAVATED [None]
  - INJECTION SITE EXTRAVASATION [None]
  - INJECTION SITE SWELLING [None]
  - INJECTION SITE VESICLES [None]
  - RENAL FAILURE [None]
